FAERS Safety Report 10477670 (Version 3)
Quarter: 2014Q4

REPORT INFORMATION
  Report Type: Report from Study
  Country: US (occurrence: US)
  Receive Date: 20140926
  Receipt Date: 20141014
  Transmission Date: 20150528
  Serious: Yes (Hospitalization)
  Sender: FDA-Public Use
  Company Number: US-ROCHE-1462305

PATIENT
  Age: 19 Year
  Sex: Male

DRUGS (7)
  1. KEPPRA [Concomitant]
     Active Substance: LEVETIRACETAM
     Route: 048
  2. DECADRON [Concomitant]
     Active Substance: DEXAMETHASONE
     Route: 048
  3. ZANTAC [Concomitant]
     Active Substance: RANITIDINE HYDROCHLORIDE
     Route: 065
  4. FENTANYL. [Concomitant]
     Active Substance: FENTANYL
  5. VEMURAFENIB [Suspect]
     Active Substance: VEMURAFENIB
     Indication: BRAIN NEOPLASM MALIGNANT
     Route: 065
     Dates: start: 20140724
  6. CLINDAMYCIN [Concomitant]
     Active Substance: CLINDAMYCIN\CLINDAMYCIN PHOSPHATE
     Dosage: THREE TIMES A DAY FOR 8 DAYS
     Route: 048
  7. MORPHINE [Concomitant]
     Active Substance: MORPHINE

REACTIONS (1)
  - Skin infection [Not Recovered/Not Resolved]

NARRATIVE: CASE EVENT DATE: 20140911
